FAERS Safety Report 18987917 (Version 1)
Quarter: 2021Q1

REPORT INFORMATION
  Report Type: Report from Study
  Country: US (occurrence: US)
  Receive Date: 20210309
  Receipt Date: 20210309
  Transmission Date: 20210420
  Serious: Yes (Hospitalization)
  Sender: FDA-Public Use
  Company Number: US-JNJFOC-A-NJ2019-191849

PATIENT
  Age: 53 Year
  Sex: Female
  Weight: 82.54 kg

DRUGS (20)
  1. VELETRI [Suspect]
     Active Substance: EPOPROSTENOL
     Dosage: 38 NG/KG, PER MIN
     Route: 042
  2. UPTRAVI [Suspect]
     Active Substance: SELEXIPAG
     Route: 048
     Dates: start: 20170414, end: 20190531
  3. REMODULIN [Concomitant]
     Active Substance: TREPROSTINIL
  4. LASIX [Concomitant]
     Active Substance: FUROSEMIDE
     Dosage: 40 MG, QD
     Dates: start: 20190615
  5. NASACORT [Concomitant]
     Active Substance: TRIAMCINOLONE ACETONIDE
     Dosage: 55 MCG, BID
  6. UPTRAVI [Suspect]
     Active Substance: SELEXIPAG
     Indication: PULMONARY ARTERIAL HYPERTENSION
     Route: 048
     Dates: start: 20170627
  7. LETAIRIS [Concomitant]
     Active Substance: AMBRISENTAN
     Dates: start: 20161026
  8. PEPCID [Concomitant]
     Active Substance: FAMOTIDINE
     Dosage: 20 MG, BID
     Dates: start: 20160329
  9. SINGULAIR [Concomitant]
     Active Substance: MONTELUKAST SODIUM
  10. LEVOTHYROXINE. [Concomitant]
     Active Substance: LEVOTHYROXINE
     Dosage: 75 MCG
     Dates: start: 2011
  11. SILDENAFIL CITRATE. [Concomitant]
     Active Substance: SILDENAFIL CITRATE
     Dates: start: 20170810
  12. CELLCEPT [Concomitant]
     Active Substance: MYCOPHENOLATE MOFETIL\MYCOPHENOLATE MOFETIL HYDROCHLORIDE
     Dosage: 100 MG, QD
     Dates: start: 20140514
  13. CLARITIN [Concomitant]
     Active Substance: LORATADINE
     Dosage: 10 MG, QD
     Dates: start: 20141220
  14. DEXILANT [Concomitant]
     Active Substance: DEXLANSOPRAZOLE
     Dosage: 60 MG, QD
     Dates: start: 20180313
  15. LUNESTA [Concomitant]
     Active Substance: ESZOPICLONE
     Dosage: 3 MG, QPM
     Dates: start: 20171212
  16. FERROUS SULFATE. [Concomitant]
     Active Substance: FERROUS SULFATE
     Dosage: 325 MG
     Dates: start: 20110505
  17. VELETRI [Suspect]
     Active Substance: EPOPROSTENOL
     Dosage: 2 UNK
     Route: 042
     Dates: start: 20190530
  18. UPTRAVI [Suspect]
     Active Substance: SELEXIPAG
     Route: 048
     Dates: start: 20190530, end: 20190603
  19. LYRICA [Concomitant]
     Active Substance: PREGABALIN
     Dosage: 200 MG, BID
     Dates: start: 20180102
  20. VELETRI [Suspect]
     Active Substance: EPOPROSTENOL
     Indication: PULMONARY ARTERIAL HYPERTENSION
     Dosage: 36 NG/KG, PER MIN
     Route: 042
     Dates: start: 2019

REACTIONS (11)
  - Oedema peripheral [Recovered/Resolved]
  - Constipation [Unknown]
  - Fatigue [Unknown]
  - Hypotension [Unknown]
  - Pulmonary hypertension [Recovered/Resolved]
  - Disease progression [Recovered/Resolved]
  - Arthralgia [Unknown]
  - Dyspnoea [Recovered/Resolved]
  - Headache [Recovered/Resolved]
  - Fluid retention [Unknown]
  - Nausea [Unknown]

NARRATIVE: CASE EVENT DATE: 20190530
